FAERS Safety Report 6646905-2 (Version None)
Quarter: 2010Q1

REPORT INFORMATION
  Report Type: 
  Country: None (occurrence: None)
  Receive Date: 20100318
  Receipt Date: 20100308
  Transmission Date: 20100710
  Serious: No
  Sender: FDA-Public Use
  Company Number: 20108396

PATIENT
  Sex: Female

DRUGS (2)
  1. LIORESAL [Suspect]
     Indication: MUSCLE SPASTICITY
     Dosage: DAILY, INTRATHECAL
     Route: 037
  2. DILAUDID [Concomitant]

REACTIONS (6)
  - DEVICE DISLOCATION [None]
  - MEDICAL DEVICE PAIN [None]
  - MEDICAL DEVICE SITE REACTION [None]
  - RASH [None]
  - SWELLING [None]
  - WEIGHT DECREASED [None]
